FAERS Safety Report 7266302-9 (Version None)
Quarter: 2011Q1

REPORT INFORMATION
  Report Type: 
  Country: None (occurrence: None)
  Receive Date: 20110131
  Receipt Date: 20110125
  Transmission Date: 20110831
  Serious: Yes (Other)
  Sender: FDA-Public Use
  Company Number: US-PFIZER INC-2010150878

PATIENT
  Sex: Female

DRUGS (8)
  1. COREG [Concomitant]
     Indication: HYPERTENSION
     Dosage: UNK
     Dates: start: 20060101
  2. COUMADIN [Concomitant]
     Indication: ISCHAEMIC HEART DISEASE PROPHYLAXIS
     Dosage: UNK
     Dates: start: 20060101
  3. ACETYLSALICYLIC ACID [Concomitant]
     Indication: ISCHAEMIC HEART DISEASE PROPHYLAXIS
     Dosage: UNK
     Dates: start: 20060101
  4. LIPITOR [Concomitant]
     Indication: BLOOD CHOLESTEROL INCREASED
     Dosage: UNK
     Dates: start: 20060101
  5. LASIX [Concomitant]
     Indication: HYPERTENSION
     Dosage: UNK
     Dates: start: 20060101, end: 20090101
  6. LASIX [Concomitant]
     Indication: CARDIAC DISORDER
  7. CHANTIX [Suspect]
     Indication: SMOKING CESSATION THERAPY
     Dosage: 1 MG, UNK
     Dates: start: 20080501, end: 20091101
  8. WARFARIN [Concomitant]
     Indication: ISCHAEMIC HEART DISEASE PROPHYLAXIS
     Dosage: UNK
     Dates: start: 20060101

REACTIONS (10)
  - ABNORMAL BEHAVIOUR [None]
  - DEPRESSION [None]
  - AGGRESSION [None]
  - EMOTIONAL DISTRESS [None]
  - JOINT INJURY [None]
  - ARTHRALGIA [None]
  - SUICIDE ATTEMPT [None]
  - MENTAL DISORDER [None]
  - ANXIETY [None]
  - IMPAIRED DRIVING ABILITY [None]
